FAERS Safety Report 15542500 (Version 1)
Quarter: 2018Q4

REPORT INFORMATION
  Report Type: Spontaneous
  Country: US (occurrence: US)
  Receive Date: 20181023
  Receipt Date: 20181023
  Transmission Date: 20190205
  Serious: Yes (Disabling, Other)
  Sender: FDA-Public Use
  Company Number: US-SA-2018SA289657

PATIENT
  Sex: Female

DRUGS (1)
  1. AUBAGIO [Suspect]
     Active Substance: TERIFLUNOMIDE
     Indication: MULTIPLE SCLEROSIS
     Dosage: 1 DF, QD
     Route: 048

REACTIONS (5)
  - Depression [Unknown]
  - Decreased interest [Unknown]
  - Disability [Unknown]
  - Flushing [Unknown]
  - Multiple sclerosis relapse [Unknown]

NARRATIVE: CASE EVENT DATE: 2018
